FAERS Safety Report 7986803 (Version 3)
Quarter: 2012Q4

REPORT INFORMATION
  Report Type: Report from Study
  Country: GB (occurrence: GB)
  Receive Date: 20110613
  Receipt Date: 20120907
  Transmission Date: 20130627
  Serious: Yes (Hospitalization)
  Sender: FDA-Public Use
  Company Number: GB-ROCHE-477634

PATIENT
  Age: 47 Year
  Sex: Female
  Weight: 67 kg

DRUGS (12)
  1. XELODA [Suspect]
     Indication: COLON CANCER
     Dosage: FREQUENCY REPORTED AS 2X.
     Route: 048
     Dates: start: 20061214, end: 20070108
  2. XELODA [Suspect]
     Route: 048
  3. XELODA [Suspect]
     Dosage: THERAPY RESTARTED.
     Route: 048
  4. AVASTIN [Suspect]
     Indication: COLON CANCER
     Dosage: DOSAGE FORM REPORTED AS INFUSION. LAST DOSE PRIOR TO SAE 26 JAN 2007.
     Route: 042
  5. OXALIPLATIN [Suspect]
     Indication: COLON CANCER
     Dosage: DOSAGE FORM REPORTED AS INFUSION, LAST DOSE PRIOR TO SAE ON 26 JAN 2007
     Route: 042
  6. CETUXIMAB [Suspect]
     Indication: PRODUCT USED FOR UNKNOWN INDICATION
     Route: 065
  7. ASPIRIN [Suspect]
     Indication: PRODUCT USED FOR UNKNOWN INDICATION
     Dosage: START DATE: 2007
     Route: 065
     Dates: start: 2007, end: 20070116
  8. METOCLOPRAMIDE [Concomitant]
     Route: 065
  9. LOPERAMIDE [Concomitant]
     Route: 065
  10. LANSOPRAZOLE [Concomitant]
     Route: 065
  11. LORAZEPAM [Concomitant]
     Route: 065
  12. DEXAMETHASONE [Concomitant]

REACTIONS (3)
  - Throat tightness [Recovered/Resolved]
  - Faeces discoloured [Recovered/Resolved]
  - Vomiting [Recovered/Resolved]
